FAERS Safety Report 4526846-7 (Version None)
Quarter: 2004Q4

REPORT INFORMATION
  Report Type: 
  Country: None (occurrence: None)
  Receive Date: 20041213
  Receipt Date: 20041125
  Transmission Date: 20050328
  Serious: Yes (Other)
  Sender: FDA-Public Use
  Company Number: DSA_25463_2004

PATIENT

DRUGS (1)
  1. RENIVACE [Suspect]
     Dosage: DF PO
     Route: 048

REACTIONS (1)
  - PANCYTOPENIA [None]
